FAERS Safety Report 9972397 (Version 1)
Quarter: 2014Q1

REPORT INFORMATION
  Report Type: Spontaneous
  Country: BE (occurrence: None)
  Receive Date: 20140304
  Receipt Date: 20140304
  Transmission Date: 20141002
  Serious: Yes (Death)
  Sender: FDA-Public Use
  Company Number: 2014P1001647

PATIENT
  Age: 76 Year
  Sex: Male

DRUGS (2)
  1. DEXAMETHASONE [Suspect]
     Indication: PLASMACYTOMA
  2. BORTEZOMIB [Suspect]
     Indication: PLASMACYTOMA

REACTIONS (4)
  - Confusional state [None]
  - Respiratory tract infection [None]
  - Neurological symptom [None]
  - Progressive multifocal leukoencephalopathy [None]
